FAERS Safety Report 5694131-6 (Version None)
Quarter: 2008Q2

REPORT INFORMATION
  Report Type: 
  Country: None (occurrence: None)
  Receive Date: 20080402
  Receipt Date: 20080324
  Transmission Date: 20081010
  Serious: Yes (Other)
  Sender: FDA-Public Use
  Company Number: 2008007523

PATIENT
  Sex: Female

DRUGS (1)
  1. LISTERINE WHITENING QUICK DISSOLVING STRIPS (NO ACTIVE INGREDIENT) [Suspect]
     Indication: DENTAL CARE
     Dosage: 2 STRIPS 2 TIMES A DAY, ORAL
     Route: 048
     Dates: start: 20080318, end: 20080318

REACTIONS (2)
  - APHTHOUS STOMATITIS [None]
  - THERMAL BURN [None]
